FAERS Safety Report 20572429 (Version 1)
Quarter: 2022Q1

REPORT INFORMATION
  Report Type: Spontaneous
  Country: US (occurrence: None)
  Receive Date: 20220308
  Receipt Date: 20220308
  Transmission Date: 20220423
  Serious: No
  Sender: FDA-Public Use
  Company Number: None

PATIENT
  Age: 76 Year
  Sex: Female

DRUGS (1)
  1. BENLYSTA [Suspect]
     Active Substance: BELIMUMAB
     Indication: Cutaneous lupus erythematosus
     Dosage: FREQUENCY : WEEKLY;?
     Route: 058
     Dates: start: 20220124

REACTIONS (4)
  - Dizziness [None]
  - Balance disorder [None]
  - Lip swelling [None]
  - Lip erythema [None]

NARRATIVE: CASE EVENT DATE: 20220307
